FAERS Safety Report 20081952 (Version 1)
Quarter: 2021Q4

REPORT INFORMATION
  Report Type: Spontaneous
  Country: CH (occurrence: CH)
  Receive Date: 20211117
  Receipt Date: 20211117
  Transmission Date: 20220304
  Serious: Yes (Hospitalization)
  Sender: FDA-Public Use
  Company Number: None

PATIENT
  Age: 79 Year
  Sex: Male
  Weight: 80 kg

DRUGS (16)
  1. HYDROCHLOROTHIAZIDE\OLMESARTAN MEDOXOMIL [Suspect]
     Active Substance: HYDROCHLOROTHIAZIDE\OLMESARTAN MEDOXOMIL
     Indication: Hypertension
     Dosage: UNK UNK, QD (1-0-0)
     Route: 048
     Dates: start: 20210505, end: 20211006
  2. DIGOXIN [Suspect]
     Active Substance: DIGOXIN
     Indication: Product used for unknown indication
     Dosage: 0.25 MILLIGRAM, QD 1-0-0-0
     Route: 048
     Dates: start: 2016, end: 20211006
  3. METFORMIN HYDROCHLORIDE [Suspect]
     Active Substance: METFORMIN HYDROCHLORIDE
     Indication: Type 2 diabetes mellitus
     Dosage: 500 MILLIGRAM, BID 1-0-1-0 (START 06-SEP-2021)
     Route: 048
     Dates: end: 20210922
  4. PRAVASTATIN [Concomitant]
     Active Substance: PRAVASTATIN
     Indication: Dyslipidaemia
     Dosage: 40 MILLIGRAM 0-0-1-0
     Route: 048
     Dates: start: 2016
  5. ALLOPURINOL [Concomitant]
     Active Substance: ALLOPURINOL
     Indication: Gout
     Dosage: 100 MILLIGRAM, QD 1-0-0-0
     Route: 048
     Dates: start: 2016
  6. DAFALGAN [Concomitant]
     Active Substance: ACETAMINOPHEN
     Indication: Pain in extremity
     Dosage: 1 GRAM
     Dates: start: 20210505, end: 20211006
  7. DAFALGAN [Concomitant]
     Active Substance: ACETAMINOPHEN
     Dosage: 1 GRAM, QD 1-0-0-0
     Route: 048
  8. METOPROLOL SUCCINATE [Concomitant]
     Active Substance: METOPROLOL SUCCINATE
     Indication: Atrial fibrillation
     Dosage: 200 MILLIGRAM 1-0-0-0
     Route: 048
     Dates: start: 20210505
  9. XARELTO [Concomitant]
     Active Substance: RIVAROXABAN
     Indication: Atrial fibrillation
     Dosage: 20 MILLIGRAM, QD 0-0-1-0
     Route: 048
     Dates: start: 2016
  10. CARBOLEVURE                        /02124001/ [Concomitant]
     Indication: Diarrhoea
     Dosage: 1 DOSAGE FORM, TID, START 29-SEP-2021
     Dates: end: 20211006
  11. BIOFLORIN                          /00079701/ [Concomitant]
     Indication: Diarrhoea
     Dosage: 1 DOSAGE FORM, TID 1-1-1-0, START 29-SEP-2021
     Route: 048
     Dates: end: 20211006
  12. CERNEVIT                           /06027301/ [Concomitant]
     Dosage: UNK SINGLE DOSE, START 29-SEP-2021
     Route: 042
  13. CERNEVIT                           /06027301/ [Concomitant]
     Dosage: UNK SINGLE DOSE, START 01-OCT-2021
     Route: 042
  14. CERNEVIT                           /06027301/ [Concomitant]
     Dosage: UNK SINGLE DOSE, START 04-OCT-2021
     Route: 042
  15. OLMESARTAN+HCTZ/MYLAN [Concomitant]
     Dosage: UNK 40/12.5 MG 1-0-0-0
     Route: 048
     Dates: start: 20210505, end: 20211006
  16. IMODIUM [Concomitant]
     Active Substance: LOPERAMIDE HYDROCHLORIDE
     Dosage: UNK

REACTIONS (3)
  - Toxicity to various agents [Recovering/Resolving]
  - Diarrhoea [Recovering/Resolving]
  - Condition aggravated [Recovering/Resolving]

NARRATIVE: CASE EVENT DATE: 20210901
